FAERS Safety Report 6852632-9 (Version None)
Quarter: 2010Q3

REPORT INFORMATION
  Report Type: 
  Country: None (occurrence: None)
  Receive Date: 20100717
  Receipt Date: 20071214
  Transmission Date: 20110219
  Serious: No
  Sender: FDA-Public Use
  Company Number: US-PFIZER INC-2007097468

PATIENT
  Sex: Female
  Weight: 90.7 kg

DRUGS (3)
  1. CHANTIX [Suspect]
     Indication: SMOKING CESSATION THERAPY
     Dates: start: 20070101, end: 20071114
  2. NORTRIPTYLINE [Concomitant]
  3. MOTRIN [Concomitant]
     Indication: MIGRAINE

REACTIONS (1)
  - DYSPNOEA [None]
